FAERS Safety Report 17101859 (Version 1)
Quarter: 2019Q4

REPORT INFORMATION
  Report Type: Spontaneous
  Country: US (occurrence: US)
  Receive Date: 20191202
  Receipt Date: 20191202
  Transmission Date: 20200122
  Serious: No
  Sender: FDA-Public Use
  Company Number: US-ELITE LABORATORIES INC.-2019ELT00024

PATIENT

DRUGS (1)
  1. DANTROLENE SODIUM. [Suspect]
     Active Substance: DANTROLENE SODIUM

REACTIONS (1)
  - Hypersensitivity [Unknown]
